FAERS Safety Report 9207239 (Version 2)
Quarter: 2014Q1

REPORT INFORMATION
  Report Type: Spontaneous
  Country: US (occurrence: US)
  Receive Date: 20130403
  Receipt Date: 20140110
  Transmission Date: 20141002
  Serious: Yes (Other)
  Sender: FDA-Public Use
  Company Number: US-BAYER-2013-040710

PATIENT
  Age: 19 Year
  Sex: Female
  Weight: 56.69 kg

DRUGS (4)
  1. OCELLA [Suspect]
     Dosage: UNK
     Dates: start: 2009
  2. NEXIUM [Concomitant]
     Dosage: 40 MG, UNK
     Route: 048
     Dates: start: 20111102
  3. NEXIUM [Concomitant]
     Dosage: UNK
     Route: 048
     Dates: start: 20111222
  4. HYDROCODONE W/ACETAMINOPHEN [Concomitant]
     Dosage: 5-500MG
     Route: 048
     Dates: start: 20111102

REACTIONS (6)
  - Cholecystectomy [None]
  - Cholecystitis chronic [None]
  - Pain [None]
  - Biliary dyskinesia [None]
  - Injury [None]
  - Pain [None]
